FAERS Safety Report 17457248 (Version 1)
Quarter: 2020Q1

REPORT INFORMATION
  Report Type: Report from Study
  Country: US (occurrence: US)
  Receive Date: 20200225
  Receipt Date: 20200225
  Transmission Date: 20200409
  Serious: Yes (Other)
  Sender: FDA-Public Use
  Company Number: US-PUMA BIOTECHNOLOGY, LTD.-2020US001067

PATIENT

DRUGS (1)
  1. NERLYNX [Suspect]
     Active Substance: NERATINIB
     Indication: BREAST CANCER FEMALE
     Dosage: 240 MG, (6 TABLETS) DAILY
     Route: 048

REACTIONS (3)
  - Constipation [Unknown]
  - Hair growth abnormal [Unknown]
  - Brain operation [Unknown]

NARRATIVE: CASE EVENT DATE: 202002
